FAERS Safety Report 9967202 (Version 2)
Quarter: 2014Q1

REPORT INFORMATION
  Report Type: Report from Study
  Country: US (occurrence: US)
  Receive Date: 20140305
  Receipt Date: 20140305
  Transmission Date: 20141002
  Serious: No
  Sender: FDA-Public Use
  Company Number: US-ABBVIE-13P-163-1093133-00

PATIENT
  Age: 48 Year
  Sex: Male
  Weight: 163.44 kg

DRUGS (10)
  1. HUMIRA [Suspect]
     Indication: CROHN^S DISEASE
     Dates: start: 20130226, end: 20130226
  2. HUMIRA [Suspect]
     Dates: start: 20130312, end: 20130312
  3. HUMIRA [Suspect]
     Dates: start: 20130326
  4. LEVEMIR [Concomitant]
     Indication: DIABETES MELLITUS
  5. METFORMIN [Concomitant]
     Indication: DIABETES MELLITUS
  6. OMEPRAZOLE [Concomitant]
     Indication: GASTROOESOPHAGEAL REFLUX DISEASE
  7. METOPROLOL [Concomitant]
     Indication: SUPRAVENTRICULAR EXTRASYSTOLES
  8. ASPIRIN (E.C.) [Concomitant]
     Indication: CARDIOVASCULAR EVENT PROPHYLAXIS
  9. ASPIRIN (E.C.) [Concomitant]
     Indication: CARDIOVASCULAR EVENT PROPHYLAXIS
  10. VITAMIN D3 [Concomitant]
     Indication: VITAMIN SUPPLEMENTATION

REACTIONS (3)
  - Fatigue [Not Recovered/Not Resolved]
  - Local swelling [Not Recovered/Not Resolved]
  - Arthralgia [Not Recovered/Not Resolved]
